FAERS Safety Report 18692214 (Version 1)
Quarter: 2021Q1

REPORT INFORMATION
  Report Type: Report from Study
  Country: GB (occurrence: GB)
  Receive Date: 20210102
  Receipt Date: 20210102
  Transmission Date: 20210419
  Serious: Yes (Hospitalization)
  Sender: FDA-Public Use
  Company Number: NVSC2020GB346982

PATIENT
  Age: 36 Year
  Sex: Male

DRUGS (1)
  1. ENTRESTO [Suspect]
     Active Substance: SACUBITRIL\VALSARTAN
     Indication: CARDIAC FAILURE
     Dosage: 1 DF, BID
     Route: 048
     Dates: start: 20201116

REACTIONS (3)
  - Chest pain [Recovering/Resolving]
  - Pericardial effusion [Recovering/Resolving]
  - Dyspnoea [Recovering/Resolving]

NARRATIVE: CASE EVENT DATE: 20201215
